FAERS Safety Report 8230332-0 (Version None)
Quarter: 2012Q1

REPORT INFORMATION
  Report Type: 
  Country: None (occurrence: None)
  Receive Date: 20120323
  Receipt Date: 20120321
  Transmission Date: 20120608
  Serious: Yes (Hospitalization)
  Sender: FDA-Public Use
  Company Number: MX-JNJFOC-20110208589

PATIENT
  Sex: Female
  Weight: 104 kg

DRUGS (10)
  1. METHOTREXATE [Suspect]
     Indication: RHEUMATOID ARTHRITIS
     Route: 048
  2. METHOTREXATE [Concomitant]
     Route: 048
     Dates: start: 20080609
  3. CALTRATE-D [Concomitant]
     Route: 048
     Dates: start: 20050913
  4. PLACEBO [Suspect]
     Indication: RHEUMATOID ARTHRITIS
     Route: 048
  5. VALSARTAN [Concomitant]
     Route: 048
     Dates: start: 20081128
  6. GOLIMUMAB [Suspect]
     Indication: RHEUMATOID ARTHRITIS
     Route: 058
     Dates: start: 20061004
  7. FOLIC ACID [Concomitant]
     Route: 048
     Dates: start: 20011219
  8. GOLIMUMAB [Suspect]
     Route: 058
  9. NORFLEX PLUS (MEXICO) [Concomitant]
     Route: 048
     Dates: start: 20070710
  10. DICLOFENAC SODIUM [Concomitant]
     Route: 048
     Dates: start: 20090218

REACTIONS (1)
  - DYSFUNCTIONAL UTERINE BLEEDING [None]
